FAERS Safety Report 4507420-5 (Version None)
Quarter: 2004Q4

REPORT INFORMATION
  Report Type: 
  Country: None (occurrence: None)
  Receive Date: 20041118
  Receipt Date: 20041102
  Transmission Date: 20050328
  Serious: Yes (Hospitalization)
  Sender: FDA-Public Use
  Company Number: 207187

PATIENT
  Age: 62 Year
  Sex: Male
  Weight: 93.441 kg

DRUGS (5)
  1. AVONEX [Suspect]
     Indication: MULTIPLE SCLEROSIS
     Dosage: 30 MCG QW IM
     Route: 030
     Dates: start: 19990101, end: 20030801
  2. AVONEX [Suspect]
     Indication: MULTIPLE SCLEROSIS
     Dosage: 30 MCG QW IM
     Route: 030
     Dates: start: 20030801
  3. BACLOFEN [Concomitant]
  4. SLOW-FE [Concomitant]
  5. DOXAZOSIN [Concomitant]

REACTIONS (6)
  - ASTHENIA [None]
  - BACK PAIN [None]
  - DEHYDRATION [None]
  - INFLUENZA [None]
  - INFLUENZA LIKE ILLNESS [None]
  - NERVE COMPRESSION [None]
